FAERS Safety Report 20007292 (Version 2)
Quarter: 2021Q4

REPORT INFORMATION
  Report Type: Report from Study
  Country: US (occurrence: US)
  Receive Date: 20211029
  Receipt Date: 20211117
  Transmission Date: 20220303
  Serious: Yes (Death, Other)
  Sender: FDA-Public Use
  Company Number: US-ACADIA PHARMACEUTICALS INC.-ACA-2021-PIM-003577

PATIENT
  Age: 72 Year
  Sex: Male

DRUGS (3)
  1. NUPLAZID [Suspect]
     Active Substance: PIMAVANSERIN TARTRATE
     Indication: Parkinson^s disease
     Dosage: TAKE 1 CAP DAILY ALTERNATING WITH 2 CAP DAILY
     Route: 048
     Dates: start: 20191123
  2. DIACEREIN [Concomitant]
     Active Substance: DIACEREIN
  3. NOURIANZ [Concomitant]
     Active Substance: ISTRADEFYLLINE

REACTIONS (3)
  - Death [Fatal]
  - Inappropriate schedule of product administration [Not Recovered/Not Resolved]
  - Prescribed overdose [Not Recovered/Not Resolved]

NARRATIVE: CASE EVENT DATE: 20191123
